FAERS Safety Report 20893120 (Version 6)
Quarter: 2022Q3

REPORT INFORMATION
  Report Type: Spontaneous
  Country: US (occurrence: US)
  Receive Date: 20220531
  Receipt Date: 20220901
  Transmission Date: 20221026
  Serious: Yes (Hospitalization, Other)
  Sender: FDA-Public Use
  Company Number: US-GLAXOSMITHKLINE-US2022084469

PATIENT

DRUGS (3)
  1. ZEJULA [Suspect]
     Active Substance: NIRAPARIB
     Indication: Ovarian cancer
     Dosage: 200 MG, QD
     Route: 048
     Dates: start: 20220519
  2. ZEJULA [Suspect]
     Active Substance: NIRAPARIB
     Dosage: 200 MG, QD
     Route: 048
     Dates: start: 20220627
  3. ZEJULA [Suspect]
     Active Substance: NIRAPARIB
     Dosage: 200 MG, QD

REACTIONS (12)
  - Constipation [Not Recovered/Not Resolved]
  - Pain [Unknown]
  - Intestinal obstruction [Not Recovered/Not Resolved]
  - Haemoglobin abnormal [Unknown]
  - Neutropenia [Unknown]
  - Platelet count decreased [Unknown]
  - White blood cell disorder [Unknown]
  - Insomnia [Unknown]
  - Post procedural complication [Unknown]
  - Weight decreased [Unknown]
  - Gastrointestinal scarring [Unknown]
  - Adverse drug reaction [Unknown]

NARRATIVE: CASE EVENT DATE: 20220501
